FAERS Safety Report 7723939-8 (Version None)
Quarter: 2011Q3

REPORT INFORMATION
  Report Type: 
  Country: None (occurrence: None)
  Receive Date: 20110901
  Receipt Date: 20110819
  Transmission Date: 20111222
  Serious: Yes (Hospitalization, Other)
  Sender: FDA-Public Use
  Company Number: US-ELI_LILLY_AND_COMPANY-US201106008834

PATIENT
  Sex: Female
  Weight: 59 kg

DRUGS (13)
  1. SUCRALFATE [Concomitant]
  2. POTASSIUM CHLORIDE [Concomitant]
  3. ASCORBIC ACID [Concomitant]
  4. SERTRALINE HYDROCHLORIDE [Concomitant]
  5. HYDROCODONE BITARTRATE AND ACETAMINOPHEN [Concomitant]
  6. REGLAN [Concomitant]
  7. OXYCODONE HCL [Concomitant]
  8. PROMETHAZINE [Concomitant]
  9. FORTEO [Suspect]
     Dosage: 20 UG, QD
     Route: 058
  10. OMEPRAZOLE [Concomitant]
  11. NITROFURANTOIN [Concomitant]
  12. DIAZEPAM [Concomitant]
  13. FORTEO [Suspect]
     Indication: OSTEOPOROSIS
     Dosage: 20 UG, QD
     Route: 058

REACTIONS (4)
  - NEPHROLITHIASIS [None]
  - AMNESIA [None]
  - MEMORY IMPAIRMENT [None]
  - DELUSION [None]
